FAERS Safety Report 17963596 (Version 1)
Quarter: 2020Q2

REPORT INFORMATION
  Report Type: Spontaneous
  Country: US (occurrence: US)
  Receive Date: 20200630
  Receipt Date: 20200630
  Transmission Date: 20200714
  Serious: Yes (Other)
  Sender: FDA-Public Use
  Company Number: None

PATIENT
  Age: 64 Year
  Sex: Female
  Weight: 67.5 kg

DRUGS (31)
  1. WELLBUTRIN [Concomitant]
     Active Substance: BUPROPION HYDROCHLORIDE
  2. GLUCOSAMINE [Concomitant]
     Active Substance: GLUCOSAMINE
  3. BOTOX [Suspect]
     Active Substance: ONABOTULINUMTOXINA
     Indication: MIGRAINE
     Dosage: ?          OTHER ROUTE:CRANIOFACIAL INJECTION SITES?
     Dates: start: 20200526, end: 20200526
  4. LIDOCAINE 3% PATCH [Concomitant]
  5. MULTI-VITAMIN [Concomitant]
     Active Substance: .ALPHA.-TOCOPHEROL ACETATE, DL-\ASCORBIC ACID\CYANOCOBALAMIN\FLUORIDE ION\FOLIC ACID\NIACIN\PYRIDOXINE\RIBOFLAVIN\THIAMINE\VITAMIN A\VITAMIN D
  6. VITAMIN D [Concomitant]
     Active Substance: VITAMIN D NOS
  7. IMITREX [Concomitant]
     Active Substance: SUMATRIPTAN SUCCINATE
  8. ESTRADIOL CREAM [Concomitant]
     Active Substance: ESTRADIOL HEMIHYDRATE
  9. SOMA [Concomitant]
     Active Substance: CARISOPRODOL
  10. ZOFRAN [Concomitant]
     Active Substance: ONDANSETRON HYDROCHLORIDE
  11. IRON [Concomitant]
     Active Substance: IRON
  12. IBUPROFEN. [Concomitant]
     Active Substance: IBUPROFEN
  13. TYLENOL [Concomitant]
     Active Substance: ACETAMINOPHEN
  14. AIMOVIG [Concomitant]
     Active Substance: ERENUMAB-AOOE
  15. METHOCARBAMOL. [Concomitant]
     Active Substance: METHOCARBAMOL
  16. INDERAL [Concomitant]
     Active Substance: PROPRANOLOL HYDROCHLORIDE
  17. PANTOPRAZOLE [Concomitant]
     Active Substance: PANTOPRAZOLE
  18. MAGNESIUM [Concomitant]
     Active Substance: MAGNESIUM
  19. AMBIEN [Concomitant]
     Active Substance: ZOLPIDEM TARTRATE
  20. PHENERGAN [Concomitant]
     Active Substance: PROMETHAZINE HYDROCHLORIDE
  21. VITAMIN B12 [Concomitant]
     Active Substance: CYANOCOBALAMIN
  22. ZINC. [Concomitant]
     Active Substance: ZINC
  23. AMITRIPTYLINE [Concomitant]
     Active Substance: AMITRIPTYLINE
  24. DIFLUCAN [Concomitant]
     Active Substance: FLUCONAZOLE
  25. RED YEAST RICE [Concomitant]
     Active Substance: DIETARY SUPPLEMENT
  26. NORCO [Concomitant]
     Active Substance: ACETAMINOPHEN\HYDROCODONE BITARTRATE
  27. DICLOEFENAC 3.5% COMPOUND CREAM [Concomitant]
  28. BENADRYL [Concomitant]
     Active Substance: DIPHENHYDRAMINE HYDROCHLORIDE
  29. VITAMIN C [Concomitant]
     Active Substance: ASCORBIC ACID
  30. ALEVE [Concomitant]
     Active Substance: NAPROXEN SODIUM
  31. MIRALAX [Concomitant]
     Active Substance: POLYETHYLENE GLYCOL 3350

REACTIONS (6)
  - Migraine [None]
  - Nasopharyngitis [None]
  - Dysphagia [None]
  - Cough [None]
  - Foreign body in throat [None]
  - Asthenia [None]

NARRATIVE: CASE EVENT DATE: 20200526
